FAERS Safety Report 22150532 (Version 1)
Quarter: 2023Q1

REPORT INFORMATION
  Report Type: Report from Study
  Country: CA (occurrence: CA)
  Receive Date: 20230329
  Receipt Date: 20230329
  Transmission Date: 20230418
  Serious: Yes (Other)
  Sender: FDA-Public Use
  Company Number: CA-JNJFOC-20230310409

PATIENT
  Age: 57 Year
  Sex: Female
  Weight: 82 kg

DRUGS (5)
  1. STELARA [Suspect]
     Active Substance: USTEKINUMAB
     Indication: Crohn^s disease
     Route: 058
     Dates: start: 20220322
  2. STELARA [Suspect]
     Active Substance: USTEKINUMAB
     Route: 042
  3. STELARA [Suspect]
     Active Substance: USTEKINUMAB
     Route: 058
  4. STELARA [Suspect]
     Active Substance: USTEKINUMAB
     Route: 042
  5. STELARA [Suspect]
     Active Substance: USTEKINUMAB
     Dosage: RELOADING ON 22-MAR-2023
     Route: 058
     Dates: start: 20230322

REACTIONS (7)
  - Crohn^s disease [Not Recovered/Not Resolved]
  - Vascular operation [Recovering/Resolving]
  - Colitis [Unknown]
  - Tenderness [Not Recovered/Not Resolved]
  - Osteoarthritis [Unknown]
  - Drug level decreased [Unknown]
  - Off label use [Unknown]

NARRATIVE: CASE EVENT DATE: 20230101
